FAERS Safety Report 7501741-X (Version None)
Quarter: 2011Q2

REPORT INFORMATION
  Report Type: 
  Country: None (occurrence: None)
  Receive Date: 20110525
  Receipt Date: 20110520
  Transmission Date: 20111010
  Serious: No
  Sender: FDA-Public Use
  Company Number: JP-ELI_LILLY_AND_COMPANY-JP201104004810

PATIENT
  Age: 45 Year
  Sex: Female

DRUGS (7)
  1. ZYPREXA [Suspect]
     Indication: DEPRESSION
     Dosage: 2.5 MG, QD
     Route: 048
     Dates: start: 20100521
  2. LUDIOMIL                                /SCH/ [Concomitant]
     Dosage: 10 MG, QD
     Route: 048
     Dates: start: 20101112, end: 20110429
  3. PURSENNID                          /00571902/ [Concomitant]
     Dosage: 12 MG, QD
     Route: 048
     Dates: start: 20100531
  4. ACINON [Concomitant]
     Dosage: 150 MG, QD
     Route: 048
     Dates: start: 20110121
  5. CYMBALTA [Suspect]
     Indication: DEPRESSION
     Dosage: 30 MG, QD
     Route: 048
     Dates: start: 20100804
  6. REMERON [Concomitant]
     Indication: DEPRESSION
     Dosage: 15 MG, QD
     Route: 048
     Dates: start: 20100611
  7. ALPRAZOLAM [Concomitant]
     Indication: DEPRESSION
     Dosage: 0.4 MG, QD
     Route: 048
     Dates: start: 20100203

REACTIONS (1)
  - MENSTRUATION IRREGULAR [None]
